APPROVED DRUG PRODUCT: BOSENTAN
Active Ingredient: BOSENTAN
Strength: 62.5MG
Dosage Form/Route: TABLET;ORAL
Application: A207760 | Product #001 | TE Code: AB
Applicant: ZYDUS PHARMACEUTICALS USA INC
Approved: Apr 26, 2019 | RLD: No | RS: No | Type: RX